FAERS Safety Report 12675917 (Version 1)
Quarter: 2016Q3

REPORT INFORMATION
  Report Type: Spontaneous
  Country: US (occurrence: None)
  Receive Date: 20160822
  Receipt Date: 20160822
  Transmission Date: 20161109
  Serious: Yes (Disabling)
  Sender: FDA-Public Use
  Company Number: None

PATIENT
  Age: 34 Year
  Sex: Male
  Weight: 122.47 kg

DRUGS (1)
  1. RISPERDAL CONSTA [Suspect]
     Active Substance: RISPERIDONE
     Indication: DEPRESSION
     Dosage: 1 INJECTION(S) MONTHLY INTO THE MUSCLE
     Route: 030
     Dates: start: 20120808

REACTIONS (5)
  - Food aversion [None]
  - Hallucination [None]
  - Impaired driving ability [None]
  - Visual impairment [None]
  - Impaired work ability [None]
